FAERS Safety Report 9904426 (Version 1)
Quarter: 2014Q1

REPORT INFORMATION
  Report Type: Spontaneous
  Country: US (occurrence: US)
  Receive Date: 20140218
  Receipt Date: 20140218
  Transmission Date: 20141002
  Serious: No
  Sender: FDA-Public Use
  Company Number: US-HORIZON-PRE-0128-2013

PATIENT
  Sex: Male

DRUGS (2)
  1. RAYOS 2 MG [Suspect]
     Indication: VASCULITIS
     Dosage: SINCE 14-DEC-2013 - 4 MG EVERY NIGHT
     Route: 048
     Dates: start: 20131213
  2. OMEPRAZOLE [Concomitant]

REACTIONS (2)
  - Drug ineffective [Unknown]
  - Condition aggravated [Unknown]
